FAERS Safety Report 5749732-3 (Version None)
Quarter: 2008Q2

REPORT INFORMATION
  Report Type: 
  Country: None (occurrence: None)
  Receive Date: 20080522
  Receipt Date: 20080522
  Transmission Date: 20081010
  Serious: No
  Sender: FDA-Public Use
  Company Number: None

PATIENT
  Age: 81 Year
  Sex: Female
  Weight: 87 kg

DRUGS (1)
  1. VORICONAZOLE 100MG [Suspect]
     Indication: CANDIDURIA
     Dosage: 100MG BID PO
     Route: 048
     Dates: start: 20070111, end: 20070112

REACTIONS (1)
  - LEUKOPENIA [None]
